FAERS Safety Report 5106562-3 (Version None)
Quarter: 2006Q3

REPORT INFORMATION
  Report Type: 
  Country: None (occurrence: None)
  Receive Date: 20060918
  Receipt Date: 20060908
  Transmission Date: 20061208
  Serious: Yes (Hospitalization)
  Sender: FDA-Public Use
  Company Number: FR-GLAXOSMITHKLINE-B0438239A

PATIENT
  Age: 8 Year
  Sex: Male
  Weight: 21 kg

DRUGS (9)
  1. FORTUM [Suspect]
     Dosage: 3G PER DAY
     Route: 042
     Dates: start: 20060809, end: 20060821
  2. BACTRIM [Suspect]
     Dosage: 3TAB THREE TIMES PER WEEK
     Route: 048
     Dates: start: 20060809, end: 20060818
  3. BACTRIM [Suspect]
     Dosage: 700MG THREE TIMES PER DAY
     Route: 042
     Dates: start: 20060813, end: 20060815
  4. ROVAMYCINE [Suspect]
     Dosage: 2250000IU PER DAY
     Route: 042
     Dates: start: 20060811, end: 20060822
  5. NEURONTIN [Suspect]
     Dosage: 200MG PER DAY
     Route: 048
     Dates: start: 20060809
  6. ACETAMINOPHEN [Suspect]
     Dosage: 4UNIT PER DAY
     Route: 042
     Dates: start: 20060809
  7. VANCOMYCIN [Suspect]
     Dosage: 800MG PER DAY
     Route: 042
     Dates: start: 20060809, end: 20060821
  8. ZELITREX [Concomitant]
     Dosage: 500MG TWICE PER DAY
     Route: 065
     Dates: start: 20060809
  9. CODENFAN [Concomitant]
     Indication: COUGH
     Route: 065
     Dates: start: 20060809

REACTIONS (2)
  - COLD AGGLUTININS POSITIVE [None]
  - HAEMOLYTIC ANAEMIA [None]
